FAERS Safety Report 6275735-9 (Version None)
Quarter: 2009Q3

REPORT INFORMATION
  Report Type: 
  Country: None (occurrence: None)
  Receive Date: 20090721
  Receipt Date: 20090710
  Transmission Date: 20100115
  Serious: Yes (Hospitalization)
  Sender: FDA-Public Use
  Company Number: PHHY2009JP26918

PATIENT
  Age: 30 Year
  Sex: Male
  Weight: 65.6 kg

DRUGS (11)
  1. CYCLOSPORINE [Suspect]
     Indication: APLASTIC ANAEMIA
     Dosage: UNK
  2. METHYLPREDNISOLONE [Concomitant]
     Indication: APLASTIC ANAEMIA
  3. ANTILYMPHOCYTE IMMUNOGLOBULIN (HORSE) [Concomitant]
     Indication: APLASTIC ANAEMIA
     Dosage: UNK
  4. METENOLONE ACETATE [Concomitant]
     Indication: APLASTIC ANAEMIA
  5. NEUPOGEN [Concomitant]
     Indication: FEBRILE NEUTROPENIA
  6. NEUPOGEN [Concomitant]
     Indication: APLASTIC ANAEMIA
  7. FLUDARABINE PHOSPHATE [Concomitant]
     Dosage: 30 MG/M2 DAILY
  8. CYCLOPHOSPHAMIDE [Concomitant]
     Dosage: 60 MG/KG/DAY
  9. TACROLIMUS [Concomitant]
     Indication: PROPHYLAXIS AGAINST GRAFT VERSUS HOST DISEASE
  10. METHOTREXATE [Concomitant]
     Indication: PROPHYLAXIS AGAINST GRAFT VERSUS HOST DISEASE
     Dosage: UNK
  11. ANTIBIOTICS [Concomitant]

REACTIONS (5)
  - BILE DUCT STONE [None]
  - BILIARY DRAINAGE [None]
  - BILIARY SPHINCTEROTOMY [None]
  - CHOLANGITIS SUPPURATIVE [None]
  - CHOLELITHIASIS [None]
